FAERS Safety Report 19041200 (Version 2)
Quarter: 2021Q1

REPORT INFORMATION
  Report Type: Spontaneous
  Country: FR (occurrence: FR)
  Receive Date: 20210322
  Receipt Date: 20210331
  Transmission Date: 20210420
  Serious: Yes (Hospitalization, Other)
  Sender: FDA-Public Use
  Company Number: FR-ALLERGAN-2105002US

PATIENT
  Sex: Female
  Weight: 71 kg

DRUGS (9)
  1. REPAGLINIDE. [Concomitant]
     Active Substance: REPAGLINIDE
  2. RAMIPRIL. [Concomitant]
     Active Substance: RAMIPRIL
     Indication: HYPERTENSION
  3. OZURDEX [Suspect]
     Active Substance: DEXAMETHASONE
     Indication: DIABETIC RETINAL OEDEMA
     Dosage: 0.7 MG, SINGLE
     Route: 031
     Dates: start: 20201002, end: 20201002
  4. PRAVASTATIN. [Concomitant]
     Active Substance: PRAVASTATIN
     Indication: HYPERCHOLESTEROLAEMIA
  5. GANFORT [Concomitant]
     Active Substance: BIMATOPROST\TIMOLOL
  6. JANUMET [Concomitant]
     Active Substance: METFORMIN HYDROCHLORIDE\SITAGLIPTIN PHOSPHATE
  7. COSOPT [Concomitant]
     Active Substance: DORZOLAMIDE HYDROCHLORIDE\TIMOLOL MALEATE
  8. LENTE INSULIN NOS [Concomitant]
     Active Substance: INSULIN NOS
     Indication: TYPE 2 DIABETES MELLITUS
     Dosage: UNK, QHS
  9. VITAMIN A [Concomitant]
     Active Substance: VITAMIN A

REACTIONS (9)
  - Retinal haemorrhage [Recovering/Resolving]
  - Retinal detachment [Recovering/Resolving]
  - Corneal disorder [Recovering/Resolving]
  - Corneal oedema [Recovering/Resolving]
  - Conjunctival haemorrhage [Recovering/Resolving]
  - Visual acuity reduced [Recovering/Resolving]
  - Endophthalmitis [Recovered/Resolved]
  - Cyclitic membrane [Recovered/Resolved]
  - Hypopyon [Recovered/Resolved]

NARRATIVE: CASE EVENT DATE: 202010
